FAERS Safety Report 8445898-5 (Version None)
Quarter: 2012Q2

REPORT INFORMATION
  Report Type: 
  Country: None (occurrence: None)
  Receive Date: 20120618
  Receipt Date: 20120604
  Transmission Date: 20120825
  Serious: Yes (Other)
  Sender: FDA-Public Use
  Company Number: NL-TEVA-306156ISR

PATIENT
  Sex: Female
  Weight: 54 kg

DRUGS (8)
  1. BISOPROLOL FUMARATE [Suspect]
     Indication: MYOCARDIAL INFARCTION
     Dosage: 2.5 MILLIGRAM;
     Dates: start: 20070101
  2. METHOTREXATE [Concomitant]
     Dosage: 1 /1 WEEKS 2.5MG
     Dates: start: 20040101
  3. CARBASALATE CALCIUM [Concomitant]
     Dosage: 100 MILLIGRAM;
     Dates: start: 20070101
  4. ACETAMINOPHEN W/ CODEINE [Concomitant]
     Dosage: 1 DOSAGE FORMS; 500PARACETAMOL/20MG CODEINE
     Dates: start: 20100101
  5. METHOTREXATE [Concomitant]
     Dosage: 20 MG/WEEK
  6. SIMVASTATIN [Concomitant]
     Dosage: 40 MILLIGRAM;
  7. OMEPRAZOLE [Concomitant]
     Dosage: 20 MILLIGRAM;
     Dates: start: 20040101
  8. HUMIRA [Concomitant]
     Dosage: 1 /2 WEEKS 40MG
     Dates: start: 20070101

REACTIONS (1)
  - RETROPERITONEAL FIBROSIS [None]
